FAERS Safety Report 6055708-1 (Version None)
Quarter: 2009Q1

REPORT INFORMATION
  Report Type: 
  Country: None (occurrence: None)
  Receive Date: 20090128
  Receipt Date: 20081215
  Transmission Date: 20090719
  Serious: Yes (Hospitalization)
  Sender: FDA-Public Use
  Company Number: US-PFIZER INC-2008015237

PATIENT
  Sex: Male
  Weight: 65 kg

DRUGS (33)
  1. MARAVIROC [Suspect]
     Indication: HIV INFECTION
     Dosage: 150 MG, 2X/DAY
     Dates: start: 20050707
  2. NORVIR [Suspect]
     Indication: HIV INFECTION
     Route: 048
     Dates: start: 20050707
  3. EPZICOM [Concomitant]
     Indication: HIV INFECTION
     Route: 048
     Dates: start: 20050707
  4. REYATAZ [Concomitant]
     Indication: HIV INFECTION
     Route: 048
     Dates: start: 20050707
  5. ACETYLSALICYLIC ACID [Concomitant]
     Route: 048
     Dates: start: 20050110
  6. LIPITOR [Concomitant]
     Route: 048
     Dates: start: 20050110
  7. VASOTEC [Concomitant]
     Route: 048
     Dates: start: 20071005
  8. COREG [Concomitant]
     Route: 048
     Dates: start: 20071005
  9. PLETAL [Concomitant]
     Route: 048
     Dates: start: 20070323
  10. GLYBURIDE [Concomitant]
     Route: 048
     Dates: start: 20071005
  11. TAMSULOSIN HCL [Concomitant]
     Route: 048
     Dates: start: 20021218
  12. PROSCAR [Concomitant]
     Route: 048
     Dates: start: 20070822
  13. KLONOPIN [Concomitant]
     Route: 048
     Dates: start: 20071129
  14. WELLBUTRIN [Concomitant]
     Route: 048
     Dates: start: 20021216
  15. PREGABALIN [Concomitant]
     Route: 048
     Dates: start: 20070829
  16. PRIMIDONE [Concomitant]
     Route: 048
     Dates: start: 20071102
  17. OMEPRAZOLE [Concomitant]
     Route: 048
     Dates: start: 20060413
  18. ACYCLOVIR [Concomitant]
     Route: 048
     Dates: start: 20020311
  19. SALBUTAMOL [Concomitant]
     Route: 048
     Dates: start: 20011212
  20. ALLEGRA [Concomitant]
     Route: 048
     Dates: start: 20020206
  21. VITAMIN B COMPLEX CAP [Concomitant]
     Route: 048
     Dates: start: 20020712
  22. OXYCONTIN [Concomitant]
     Route: 048
     Dates: start: 20070928
  23. LIDODERM [Concomitant]
     Dosage: 5%
     Route: 061
     Dates: start: 20021203
  24. LOMOTIL [Concomitant]
     Route: 048
     Dates: start: 20050207
  25. OPIUM TINCTURE [Concomitant]
     Route: 048
     Dates: start: 20021029
  26. ANDROGEL [Concomitant]
     Route: 061
     Dates: start: 20030310
  27. MARINOL [Concomitant]
     Route: 048
     Dates: start: 20051209
  28. OSCAL [Concomitant]
     Route: 048
     Dates: start: 20061215
  29. CYANOCOBALAMIN [Concomitant]
     Route: 030
     Dates: start: 20061101
  30. MYCELEX [Concomitant]
     Route: 048
     Dates: start: 20070327
  31. NIZORAL [Concomitant]
     Dosage: 2%
     Route: 061
     Dates: start: 20070417
  32. GLYCEROL 2.6% [Concomitant]
     Route: 048
     Dates: start: 20070727
  33. TRIAMCINOLONE ACETONIDE [Concomitant]
     Route: 061
     Dates: start: 20070810

REACTIONS (2)
  - MENTAL STATUS CHANGES [None]
  - RENAL FAILURE ACUTE [None]
